FAERS Safety Report 6645139-5 (Version None)
Quarter: 2010Q1

REPORT INFORMATION
  Report Type: 
  Country: None (occurrence: None)
  Receive Date: 20100322
  Receipt Date: 20100311
  Transmission Date: 20100710
  Serious: No
  Sender: FDA-Public Use
  Company Number: US-BAXTER-2010BH003951

PATIENT
  Sex: Female
  Weight: 145 kg

DRUGS (4)
  1. HEPARIN SODIUM INJECTION [Suspect]
     Indication: SURGERY
     Route: 058
     Dates: start: 19910801
  2. HEPARIN SODIUM INJECTION [Suspect]
     Route: 058
     Dates: start: 19921101
  3. HEPARIN SODIUM INJECTION [Suspect]
     Route: 058
     Dates: start: 20000801
  4. HEPARIN SODIUM INJECTION [Suspect]
     Route: 058
     Dates: start: 20070301

REACTIONS (1)
  - ADVERSE EVENT [None]
